FAERS Safety Report 11823793 (Version 1)
Quarter: 2015Q4

REPORT INFORMATION
  Report Type: Spontaneous
  Country: US (occurrence: US)
  Receive Date: 20151210
  Receipt Date: 20151210
  Transmission Date: 20160305
  Serious: Yes (Other)
  Sender: FDA-Public Use
  Company Number: US-CELGENEUS-USA-2015120770

PATIENT
  Sex: Female
  Weight: 45.4 kg

DRUGS (3)
  1. THALOMID [Suspect]
     Active Substance: THALIDOMIDE
     Indication: MYELODYSPLASTIC SYNDROME
     Route: 048
     Dates: start: 201303
  2. THALOMID [Suspect]
     Active Substance: THALIDOMIDE
     Dosage: 50MG-100MG
     Route: 048
     Dates: start: 201304
  3. THALOMID [Suspect]
     Active Substance: THALIDOMIDE
     Route: 048
     Dates: start: 201503

REACTIONS (2)
  - Dyspnoea [Unknown]
  - Erythema [Unknown]
